FAERS Safety Report 6644277-0 (Version None)
Quarter: 2010Q1

REPORT INFORMATION
  Report Type: 
  Country: None (occurrence: None)
  Receive Date: 20100304
  Receipt Date: 20090616
  Transmission Date: 20100710
  Serious: Yes (Other)
  Sender: FDA-Public Use
  Company Number: US-003009

PATIENT
  Age: 54 Year
  Sex: Female
  Weight: 68 kg

DRUGS (8)
  1. ISOVUE-M 300 [Suspect]
     Indication: DIAGNOSTIC PROCEDURE
     Dosage: QD EPIDURAL
     Route: 008
     Dates: start: 20090603, end: 20090603
  2. ISOVUE-M 300 [Suspect]
     Indication: PAIN
     Dosage: QD EPIDURAL
     Route: 008
     Dates: start: 20090603, end: 20090603
  3. KENALOG-10 [Suspect]
     Indication: INJECTION
     Dosage: QD EPIDURAL
     Route: 008
     Dates: start: 20090603, end: 20090603
  4. KENALOG-10 [Suspect]
     Indication: PAIN
     Dosage: QD EPIDURAL
     Route: 008
     Dates: start: 20090603, end: 20090603
  5. PERCOCET [Concomitant]
  6. IBUPROFEN [Concomitant]
  7. BUPIVACAINE HOSPIRA (BUPIVACAINE HYDROCHLORIDE) [Concomitant]
  8. LIDOCAINE HCL [Concomitant]

REACTIONS (5)
  - BLOOD PRESSURE SYSTOLIC DECREASED [None]
  - DEPRESSED LEVEL OF CONSCIOUSNESS [None]
  - DISORIENTATION [None]
  - HEART RATE DECREASED [None]
  - HYPOAESTHESIA [None]
